FAERS Safety Report 21061599 (Version 1)
Quarter: 2022Q3

REPORT INFORMATION
  Report Type: Spontaneous
  Country: DE (occurrence: DE)
  Receive Date: 20220709
  Receipt Date: 20220709
  Transmission Date: 20221027
  Serious: Yes (Hospitalization, Other)
  Sender: FDA-Public Use
  Company Number: DE-ALKEM LABORATORIES LIMITED-DE-ALKEM-2022-06913

PATIENT
  Sex: Female

DRUGS (1)
  1. PREGABALIN [Suspect]
     Active Substance: PREGABALIN
     Indication: Product used for unknown indication
     Dosage: 800 MILLIGRAM, OD
     Route: 065

REACTIONS (11)
  - Angina pectoris [Unknown]
  - Suicidal ideation [Unknown]
  - Dysphagia [Unknown]
  - Vomiting [Unknown]
  - Dyspnoea [Unknown]
  - Sinusitis [Unknown]
  - Pyrexia [Unknown]
  - Chills [Unknown]
  - Nausea [Unknown]
  - Dry mouth [Unknown]
  - Withdrawal syndrome [Unknown]
